FAERS Safety Report 11988677 (Version 2)
Quarter: 2016Q1

REPORT INFORMATION
  Report Type: Spontaneous
  Country: US (occurrence: US)
  Receive Date: 20160202
  Receipt Date: 20160208
  Transmission Date: 20160526
  Serious: Yes (Hospitalization, Other)
  Sender: FDA-Public Use
  Company Number: US-ASTELLAS-2016US000090

PATIENT
  Age: 69 Year
  Sex: Male

DRUGS (2)
  1. XTANDI [Suspect]
     Active Substance: ENZALUTAMIDE
     Indication: PROSTATE CANCER
     Route: 048
     Dates: start: 2014
  2. XTANDI [Suspect]
     Active Substance: ENZALUTAMIDE
     Dosage: 320 MG (ACCIDENTAL DOUBLE DOSE), ONCE DAILY
     Route: 048
     Dates: start: 20151224

REACTIONS (9)
  - Amnesia [Recovered/Resolved]
  - Accidental overdose [Unknown]
  - Blood glucose increased [Recovered/Resolved]
  - Pyrexia [Recovered/Resolved]
  - Hot flush [Recovered/Resolved]
  - Feeling abnormal [Unknown]
  - Vomiting [Recovered/Resolved]
  - Disorientation [Recovered/Resolved]
  - Malaise [Unknown]

NARRATIVE: CASE EVENT DATE: 20151224
